FAERS Safety Report 7787210-0 (Version None)
Quarter: 2011Q3

REPORT INFORMATION
  Report Type: 
  Country: None (occurrence: None)
  Receive Date: 20110929
  Receipt Date: 20110928
  Transmission Date: 20111222
  Serious: Yes (Other)
  Sender: FDA-Public Use
  Company Number: US-BAYER-2011-092080

PATIENT
  Age: 66 Year
  Sex: Male

DRUGS (7)
  1. SITAGLIPTIN [Concomitant]
  2. TRIMETHOPRIM + SULFAMETHOXAZOLE [Interacting]
     Indication: URINARY TRACT INFECTION
  3. GLYBURIDE [Concomitant]
  4. SIMVASTATIN [Concomitant]
  5. NAPROXEN SODIUM [Interacting]
     Indication: ARTHRALGIA
  6. LISINOPRIL [Suspect]
  7. ROSIGLITAZONE [Concomitant]

REACTIONS (6)
  - ELECTROCARDIOGRAM ABNORMAL [None]
  - HYPERHIDROSIS [None]
  - ASTHENIA [None]
  - BLOOD CREATININE INCREASED [None]
  - NAUSEA [None]
  - HYPERKALAEMIA [None]
